FAERS Safety Report 5920407-0 (Version None)
Quarter: 2008Q4

REPORT INFORMATION
  Report Type: 
  Country: None (occurrence: None)
  Receive Date: 20081014
  Receipt Date: 20080925
  Transmission Date: 20090506
  Serious: Yes (Other)
  Sender: FDA-Public Use
  Company Number: 2008S1017459

PATIENT
  Age: 29 Year
  Sex: Female

DRUGS (1)
  1. FLUOXETINE [Suspect]
     Indication: OBSESSIVE-COMPULSIVE DISORDER
     Dosage: 20 MG;
     Dates: start: 19990101, end: 20000101

REACTIONS (3)
  - DEPERSONALISATION [None]
  - DEREALISATION [None]
  - WITHDRAWAL SYNDROME [None]
